FAERS Safety Report 5211983-4 (Version None)
Quarter: 2007Q1

REPORT INFORMATION
  Report Type: 
  Country: None (occurrence: None)
  Receive Date: 20070118
  Receipt Date: 20070108
  Transmission Date: 20070707
  Serious: Yes (Hospitalization)
  Sender: FDA-Public Use
  Company Number: FR-GLAXOSMITHKLINE-B0453285A

PATIENT
  Age: 46 Year
  Sex: Male
  Weight: 75 kg

DRUGS (5)
  1. COMBIVIR [Suspect]
     Indication: HIV INFECTION
     Route: 048
  2. BACTRIM [Suspect]
     Dosage: 2UNIT PER DAY
     Route: 048
     Dates: end: 20060801
  3. VIRAMUNE [Suspect]
     Indication: HIV INFECTION
     Route: 048
  4. PEGASYS [Suspect]
     Dosage: 1INJ WEEKLY
     Route: 058
     Dates: end: 20060801
  5. COPEGUS [Suspect]
     Dosage: 600MG TWICE PER DAY
     Route: 048
     Dates: end: 20060801

REACTIONS (6)
  - ANAEMIA [None]
  - ASTHENIA [None]
  - DYSPNOEA [None]
  - LEUKOPENIA [None]
  - NEUTROPENIA [None]
  - PYREXIA [None]
